FAERS Safety Report 10270937 (Version 3)
Quarter: 2014Q3

REPORT INFORMATION
  Report Type: Spontaneous
  Country: US (occurrence: None)
  Receive Date: 20140627
  Receipt Date: 20140730
  Transmission Date: 20150326
  Serious: Yes (Hospitalization)
  Sender: FDA-Public Use
  Company Number: 2014-US-007712

PATIENT
  Age: 52 Year
  Sex: Male

DRUGS (1)
  1. XYREM [Suspect]
     Active Substance: SODIUM OXYBATE
     Indication: TREMOR
     Route: 048
     Dates: start: 201306

REACTIONS (3)
  - Dehydration [None]
  - Off label use [None]
  - Hypoxic-ischaemic encephalopathy [None]
